FAERS Safety Report 19290452 (Version 1)
Quarter: 2021Q2

REPORT INFORMATION
  Report Type: Spontaneous
  Country: US (occurrence: US)
  Receive Date: 20210521
  Receipt Date: 20210521
  Transmission Date: 20210717
  Serious: No
  Sender: FDA-Public Use
  Company Number: US-RADIUS HEALTH INC.-2021US001638

PATIENT
  Sex: Female
  Weight: 53.52 kg

DRUGS (2)
  1. TYMLOS [Suspect]
     Active Substance: ABALOPARATIDE
     Indication: OSTEOPOROTIC FRACTURE
     Dosage: 80 MCG, QD
     Route: 058
     Dates: start: 202012
  2. TYMLOS [Suspect]
     Active Substance: ABALOPARATIDE
     Indication: OSTEOPOROSIS

REACTIONS (4)
  - Peripheral swelling [Unknown]
  - Nausea [Unknown]
  - Abdominal distension [Unknown]
  - Joint swelling [Unknown]
